FAERS Safety Report 7160562-0 (Version None)
Quarter: 2010Q4

REPORT INFORMATION
  Report Type: 
  Country: None (occurrence: None)
  Receive Date: 20101214
  Receipt Date: 20100120
  Transmission Date: 20110411
  Serious: No
  Sender: FDA-Public Use
  Company Number: US-AMGEN-TCS379277

PATIENT

DRUGS (3)
  1. ENBREL [Suspect]
     Indication: PSORIATIC ARTHROPATHY
     Dosage: 50 MG, QWK
     Route: 058
     Dates: start: 20070611
  2. ALPRAZOLAM [Concomitant]
     Dosage: .25 MG, BID
  3. BUSPIRONE HCL [Concomitant]
     Dosage: 15 MG, BID

REACTIONS (2)
  - HYPOAESTHESIA [None]
  - PARAESTHESIA [None]
